FAERS Safety Report 26123053 (Version 1)
Quarter: 2025Q4

REPORT INFORMATION
  Report Type: Spontaneous
  Country: US (occurrence: None)
  Receive Date: 20251204
  Receipt Date: 20251204
  Transmission Date: 20260118
  Serious: No
  Sender: HALOZYME
  Company Number: US-HALOZYME THERAPEUTICS, INC.-2025-US-HYL-12799

PATIENT
  Age: 48 Year

DRUGS (1)
  1. HYLENEX RECOMBINANT [Suspect]
     Active Substance: HYALURONIDASE (HUMAN RECOMBINANT)
     Indication: Dermal filler overcorrection
     Dosage: UNK

REACTIONS (2)
  - Xanthelasma [Unknown]
  - Off label use [Unknown]
